FAERS Safety Report 6022858-5 (Version None)
Quarter: 2008Q4

REPORT INFORMATION
  Report Type: 
  Country: None (occurrence: None)
  Receive Date: 20081230
  Receipt Date: 20080903
  Transmission Date: 20090506
  Serious: No
  Sender: FDA-Public Use
  Company Number: US-ABBOTT-08P-163-0474060-00

PATIENT
  Sex: Female
  Weight: 42.222 kg

DRUGS (5)
  1. OMNICEF [Suspect]
     Indication: OROPHARYNGEAL PAIN
     Route: 048
     Dates: start: 20080805, end: 20080807
  2. OMNICEF [Suspect]
     Indication: PYREXIA
  3. OXCARBAZEPINE [Concomitant]
     Indication: CONVULSION
     Route: 048
     Dates: start: 20080407
  4. FUROSEMIDE [Concomitant]
     Indication: MIGRAINE
     Dosage: 325/50MG
     Route: 048
     Dates: start: 20040101
  5. LEVOCETIRIZINE DIHYDROCHLORIDE [Concomitant]
     Indication: DRUG USE FOR UNKNOWN INDICATION
     Route: 048

REACTIONS (7)
  - ANAEMIA [None]
  - ASTHENIA [None]
  - BLISTER [None]
  - CONJUNCTIVITIS [None]
  - FATIGUE [None]
  - PYREXIA [None]
  - RASH [None]
